FAERS Safety Report 6455318-8 (Version None)
Quarter: 2009Q4

REPORT INFORMATION
  Report Type: 
  Country: None (occurrence: None)
  Receive Date: 20091125
  Receipt Date: 20091027
  Transmission Date: 20100525
  Serious: No
  Sender: FDA-Public Use
  Company Number: US-ABBOTT-09P-163-0605544-00

PATIENT
  Sex: Female
  Weight: 72.64 kg

DRUGS (6)
  1. SIMCOR [Suspect]
     Indication: BLOOD CHOLESTEROL INCREASED
     Dosage: UNSURE OF STRENGTH
     Route: 048
     Dates: start: 20091016, end: 20091026
  2. NEW PHASE [Concomitant]
     Indication: NERVOUSNESS
     Dosage: OTC
     Route: 048
  3. NEW PHASE [Concomitant]
     Indication: MEDICAL DIET
  4. ASCORBIC ACID [Concomitant]
     Indication: VITAMIN SUPPLEMENTATION
     Route: 048
  5. ONE A DAY FOR WOMEN MULTIVITAMIN [Concomitant]
     Indication: VITAMIN SUPPLEMENTATION
     Route: 048
  6. CALTRATE + D [Concomitant]
     Indication: MINERAL SUPPLEMENTATION
     Route: 048

REACTIONS (6)
  - CHEST PAIN [None]
  - CONSTIPATION [None]
  - ERYTHEMA [None]
  - FEELING ABNORMAL [None]
  - PAIN IN JAW [None]
  - PARAESTHESIA [None]
